FAERS Safety Report 24025520 (Version 1)
Quarter: 2024Q2

REPORT INFORMATION
  Report Type: Report from Study
  Country: HK (occurrence: HK)
  Receive Date: 20240628
  Receipt Date: 20240628
  Transmission Date: 20240716
  Serious: No
  Sender: FDA-Public Use
  Company Number: HK-ROCHE-3331812

PATIENT
  Sex: Female

DRUGS (1)
  1. PHESGO [Suspect]
     Active Substance: HYALURONIDASE-ZZXF\PERTUZUMAB\TRASTUZUMAB
     Indication: Breast cancer
     Dosage: FREQUENCY 3?INTERVAL BETWEEN THE 5TH (21/DEC/2022) AND 6TH (18/JAN/2023) INJECTION WAS MORE THAN 3 W
     Route: 065
     Dates: start: 20220927

REACTIONS (2)
  - No adverse event [Unknown]
  - Off label use [Unknown]
